FAERS Safety Report 8364052-9 (Version None)
Quarter: 2012Q2

REPORT INFORMATION
  Report Type: 
  Country: None (occurrence: None)
  Receive Date: 20120516
  Receipt Date: 20120229
  Transmission Date: 20120825
  Serious: No
  Sender: FDA-Public Use
  Company Number: US-ALEXION-A201200374

PATIENT
  Sex: Male

DRUGS (3)
  1. MEPRON [Suspect]
     Indication: BONE MARROW TRANSPLANT
     Dosage: UNK
  2. PENTAMIDINE ISETHIONATE [Suspect]
     Indication: BONE MARROW TRANSPLANT
     Dosage: UNK
  3. SOLIRIS [Suspect]
     Indication: PAROXYSMAL NOCTURNAL HAEMOGLOBINURIA
     Dosage: UNK
     Route: 042

REACTIONS (3)
  - CHROMATURIA [None]
  - OROPHARYNGEAL PAIN [None]
  - PLATELET COUNT DECREASED [None]
